FAERS Safety Report 4850904-0 (Version None)
Quarter: 2005Q4

REPORT INFORMATION
  Report Type: 
  Country: None (occurrence: None)
  Receive Date: 20051212
  Receipt Date: 20051201
  Transmission Date: 20060501
  Serious: Yes (Hospitalization)
  Sender: FDA-Public Use
  Company Number: 0084-03-084

PATIENT
  Age: 35 Year
  Sex: Male

DRUGS (6)
  1. AMOXICILLIN AND CLAVULANATE POTASSIUM [Suspect]
     Route: 065
  2. NORFLOXACIN [Suspect]
     Dosage: 400MG TWICE PER DAY
     Route: 048
  3. SPIRONOLACTONE [Suspect]
     Dosage: 75MG PER DAY
     Route: 065
  4. FUROSEMIDE [Suspect]
     Dosage: 40MG PER DAY
     Route: 065
  5. PROPRANOLOL [Suspect]
     Dosage: 160MG PER DAY
     Route: 065
  6. TERLIPRESSIN [Concomitant]
     Route: 042

REACTIONS (1)
  - EOSINOPHILIA [None]
